FAERS Safety Report 13068682 (Version 1)
Quarter: 2016Q4

REPORT INFORMATION
  Report Type: Spontaneous
  Country: DE (occurrence: DE)
  Receive Date: 20161228
  Receipt Date: 20161228
  Transmission Date: 20170207
  Serious: Yes (Hospitalization, Other)
  Sender: FDA-Public Use
  Company Number: DE-PFIZER INC-2016595955

PATIENT
  Sex: Male

DRUGS (2)
  1. DIAZEPAM. [Suspect]
     Active Substance: DIAZEPAM
     Dosage: (5-10 MG), DAILY
  2. LORAZEPAM. [Suspect]
     Active Substance: LORAZEPAM
     Dosage: (5-10 MG), DAILY

REACTIONS (3)
  - Drug dependence [Unknown]
  - Rhabdomyolysis [Unknown]
  - Renal failure [Unknown]

NARRATIVE: CASE EVENT DATE: 2014
